FAERS Safety Report 26014111 (Version 1)
Quarter: 2025Q4

REPORT INFORMATION
  Report Type: Spontaneous
  Country: US (occurrence: US)
  Receive Date: 20251108
  Receipt Date: 20251108
  Transmission Date: 20260118
  Serious: Yes (Other)
  Sender: EPIC PHARM
  Company Number: US-EPICPHARMA-US-2025EPCLIT01191

PATIENT
  Age: 45 Year
  Sex: Female

DRUGS (4)
  1. PANTOPRAZOLE SODIUM [Suspect]
     Active Substance: PANTOPRAZOLE SODIUM
     Indication: Helicobacter infection
     Route: 065
  2. MOXIFLOXACIN HYDROCHLORIDE [Suspect]
     Active Substance: MOXIFLOXACIN HYDROCHLORIDE
     Indication: Helicobacter infection
     Route: 065
  3. RIFABUTIN [Suspect]
     Active Substance: RIFABUTIN
     Indication: Helicobacter infection
     Route: 065
  4. ACETAMINOPHEN [Concomitant]
     Active Substance: ACETAMINOPHEN
     Route: 065

REACTIONS (2)
  - Neutropenia [Recovered/Resolved]
  - Product use in unapproved indication [Unknown]
